FAERS Safety Report 7162484-8 (Version None)
Quarter: 2010Q4

REPORT INFORMATION
  Report Type: 
  Country: None (occurrence: None)
  Receive Date: 20101215
  Receipt Date: 20091109
  Transmission Date: 20110411
  Serious: Yes (Other)
  Sender: FDA-Public Use
  Company Number: US-PFIZER INC-2009296658

PATIENT

DRUGS (3)
  1. LYRICA [Suspect]
     Dosage: UNK
  2. MORPHINE SUL HYT [Interacting]
     Dosage: UNK
  3. OXYCONTIN [Interacting]
     Dosage: UNK

REACTIONS (2)
  - CATATONIA [None]
  - DRUG INTERACTION [None]
